FAERS Safety Report 10300768 (Version 4)
Quarter: 2017Q1

REPORT INFORMATION
  Report Type: Report from Study
  Country: CA (occurrence: CA)
  Receive Date: 20140714
  Receipt Date: 20170103
  Transmission Date: 20170428
  Serious: Yes (Other)
  Sender: FDA-Public Use
  Company Number: CA-ROCHE-1292063

PATIENT
  Sex: Female
  Weight: 92 kg

DRUGS (7)
  1. ACTEMRA [Suspect]
     Active Substance: TOCILIZUMAB
     Route: 042
     Dates: start: 20131112, end: 20161027
  2. METHOTREXATE. [Concomitant]
     Active Substance: METHOTREXATE
  3. COVERSYL [Concomitant]
     Active Substance: PERINDOPRIL
  4. ACTEMRA [Suspect]
     Active Substance: TOCILIZUMAB
     Indication: RHEUMATOID ARTHRITIS
     Route: 042
     Dates: start: 20121206
  5. CRESTOR [Concomitant]
     Active Substance: ROSUVASTATIN CALCIUM
  6. CELEBREX [Concomitant]
     Active Substance: CELECOXIB
  7. HYDROCHLOROTHIAZIDE. [Concomitant]
     Active Substance: HYDROCHLOROTHIAZIDE

REACTIONS (2)
  - Weight increased [Not Recovered/Not Resolved]
  - Limb discomfort [Recovered/Resolved]
